FAERS Safety Report 7293238-X (Version None)
Quarter: 2011Q1

REPORT INFORMATION
  Report Type: 
  Country: None (occurrence: None)
  Receive Date: 20110215
  Receipt Date: 20110210
  Transmission Date: 20110831
  Serious: Yes (Other)
  Sender: FDA-Public Use
  Company Number: IR-B.I. PHARMACEUTICALS,INC./RIDGEFIELD-2011-DE-01023GD

PATIENT
  Sex: Male

DRUGS (7)
  1. MIDAZOLAM [Suspect]
     Indication: MAINTENANCE OF ANAESTHESIA
  2. NALOXONE [Suspect]
     Indication: DETOXIFICATION
  3. MIDAZOLAM [Suspect]
     Indication: ANAESTHETIC PREMEDICATION
     Dosage: PREMEDICATION WITH 0.2 MG/KG, MAINTENANCE WITH 0.15 MG/KG/H
  4. H2-RECEPTOR ANTAGONIST [Concomitant]
     Indication: GASTRITIS PROPHYLAXIS
  5. CLONIDINE [Suspect]
     Indication: ANAESTHETIC PREMEDICATION
     Dosage: 0.4 MG
  6. PROPOFOL [Suspect]
     Indication: INDUCTION AND MAINTENANCE OF ANAESTHESIA
     Dosage: INDUCTION WITH 1.5 MG/KG, MAINTENANCE WITH 0.5 MG/KG/H
  7. ATRACURIUM [Suspect]
     Indication: INDUCTION AND MAINTENANCE OF ANAESTHESIA
     Dosage: INDUCTION WITH 0.5 MG/KG, MAINTENANCE WITH 0.5 MG/KG/30 MIN

REACTIONS (1)
  - DELAYED RECOVERY FROM ANAESTHESIA [None]
